FAERS Safety Report 10563680 (Version 6)
Quarter: 2015Q2

REPORT INFORMATION
  Report Type: Spontaneous
  Country: US (occurrence: US)
  Receive Date: 20141104
  Receipt Date: 20150615
  Transmission Date: 20150821
  Serious: Yes (Other)
  Sender: FDA-Public Use
  Company Number: US-PFIZER INC-2014279673

PATIENT
  Age: 49 Year
  Sex: Male
  Weight: 100 kg

DRUGS (22)
  1. SENNA [Concomitant]
     Active Substance: SENNA LEAF\SENNOSIDES\SENNOSIDES A AND B
     Indication: PROPHYLAXIS
     Dosage: 8.6 MG, DAILY (2 CAPSULES AT BEDTIME)
     Dates: start: 20141017
  2. ATENOLOL. [Concomitant]
     Active Substance: ATENOLOL
     Indication: BLOOD PRESSURE
     Dosage: 50 MG, 1X/DAY
     Dates: start: 20140725
  3. WELLBUTRIN XL [Concomitant]
     Active Substance: BUPROPION HYDROCHLORIDE
     Dosage: 150 MG, DAILY
     Dates: start: 20141017
  4. LYRICA [Suspect]
     Active Substance: PREGABALIN
     Indication: INTERVERTEBRAL DISC DEGENERATION
     Dosage: 150 MG, 2X/DAY
     Route: 048
     Dates: start: 20141015, end: 201410
  5. ALPRAZOLAM. [Concomitant]
     Active Substance: ALPRAZOLAM
     Indication: ANXIETY
     Dosage: 2 MG, 4X/DAY
  6. TRAMADOL [Concomitant]
     Active Substance: TRAMADOL
     Indication: NERVOUSNESS
     Dosage: 50 MG, 4X/DAY(1 TABLET Q 6 HOURS PRN)
     Dates: start: 20140829
  7. HYDROCHLOROTHIAZIDE. [Concomitant]
     Active Substance: HYDROCHLOROTHIAZIDE
     Indication: DIURETIC THERAPY
     Dosage: 50 MG, DAILY
     Dates: start: 20140917
  8. VITAMIN D3 [Concomitant]
     Active Substance: CHOLECALCIFEROL
     Dosage: 50000 DF, WEEKLY
     Dates: start: 20140626
  9. LYRICA [Suspect]
     Active Substance: PREGABALIN
     Indication: NERVE INJURY
  10. OXYCODONE HYDROCHLORIDE AND ACETAMINOPHEN [Concomitant]
     Active Substance: ACETAMINOPHEN\OXYCODONE HYDROCHLORIDE
     Indication: PAIN
     Dosage: 10/325 MG; 1 PILL FIVE TIMES DAILY
     Route: 048
  11. GABAPENTIN. [Concomitant]
     Active Substance: GABAPENTIN
     Indication: NERVE INJURY
  12. VITAMIN D [Concomitant]
     Active Substance: CHOLECALCIFEROL
     Indication: VITAMIN D DEFICIENCY
     Dosage: 50000 UNIT CAPSULE
  13. XANAX [Concomitant]
     Active Substance: ALPRAZOLAM
     Dosage: 2 MG, 4X/DAY (1 TABLET QID PRN)
     Dates: start: 20140919
  14. NEURONTIN [Concomitant]
     Active Substance: GABAPENTIN
     Dosage: 800 MG, 3X/DAY
     Dates: start: 20141003
  15. PERCOCET [Concomitant]
     Active Substance: ACETAMINOPHEN\OXYCODONE HYDROCHLORIDE
     Dosage: 10-325MG,TABLET ONE 5X/DAY
     Dates: start: 20141015
  16. LYRICA [Suspect]
     Active Substance: PREGABALIN
     Indication: NEUROPATHY PERIPHERAL
     Dosage: 75 MG, 2X/DAY
     Route: 048
     Dates: start: 201401, end: 2014
  17. BUPROPION [Concomitant]
     Active Substance: BUPROPION
     Indication: DEPRESSION
     Dosage: 150 MG, 1X/DAY
  18. TEMAZEPAM. [Concomitant]
     Active Substance: TEMAZEPAM
     Indication: INSOMNIA
     Dosage: 30 MG, 1X/DAY
     Dates: start: 20140919
  19. PHENTERMINE [Concomitant]
     Active Substance: PHENTERMINE
     Indication: WEIGHT CONTROL
     Dosage: 37.5 MG, 1X/DAY
  20. TRAMADOL [Concomitant]
     Active Substance: TRAMADOL
     Indication: NERVE INJURY
  21. GABAPENTIN. [Concomitant]
     Active Substance: GABAPENTIN
     Indication: NEUROPATHY PERIPHERAL
     Dosage: 800 MG, 3X/DAY
     Route: 048
  22. AMITRIPTYLINE HCL CF [Concomitant]
     Dosage: 20 MG, DAILY (2 TABLET AT BEDTIME)
     Dates: start: 20141015

REACTIONS (9)
  - Peripheral swelling [Not Recovered/Not Resolved]
  - Paraesthesia [Unknown]
  - Walking disability [Not Recovered/Not Resolved]
  - Fluid retention [Unknown]
  - Pain in extremity [Not Recovered/Not Resolved]
  - Burning sensation [Not Recovered/Not Resolved]
  - Folliculitis [Unknown]
  - Sinusitis [Recovering/Resolving]
  - Blister [Unknown]

NARRATIVE: CASE EVENT DATE: 201410
